FAERS Safety Report 9888486 (Version 2)
Quarter: 2014Q1

REPORT INFORMATION
  Report Type: Spontaneous
  Country: FR (occurrence: FR)
  Receive Date: 20140211
  Receipt Date: 20140225
  Transmission Date: 20141002
  Serious: Yes (Life-Threatening, Hospitalization)
  Sender: FDA-Public Use
  Company Number: FR-BRACCO-001358

PATIENT
  Age: 55 Year
  Sex: Male

DRUGS (7)
  1. MULTIHANCE [Suspect]
     Indication: NUCLEAR MAGNETIC RESONANCE IMAGING
     Route: 042
     Dates: start: 20140106, end: 20140106
  2. NEBILOX [Concomitant]
  3. COLCHICINE [Concomitant]
  4. OLMETEC [Concomitant]
  5. TAHOR [Concomitant]
  6. PARIET [Concomitant]
  7. ASPEGIC [Concomitant]

REACTIONS (2)
  - Cardiac arrest [Recovered/Resolved]
  - Convulsion [Recovered/Resolved]
